FAERS Safety Report 5315427-3 (Version None)
Quarter: 2007Q2

REPORT INFORMATION
  Report Type: 
  Country: None (occurrence: None)
  Receive Date: 20070503
  Receipt Date: 20070425
  Transmission Date: 20071010
  Serious: Yes (Other)
  Sender: FDA-Public Use
  Company Number: PHEH2007US05289

PATIENT
  Age: 64 Year
  Sex: Male

DRUGS (9)
  1. ZELNORM [Suspect]
  2. GLIMEPIRIDE [Concomitant]
  3. METFORMIN HCL [Concomitant]
  4. PLAVIX [Concomitant]
  5. PREVACID [Concomitant]
  6. TRICOR [Concomitant]
  7. NORVASC [Concomitant]
  8. AVANDIA [Concomitant]
  9. LIPITOR [Concomitant]

REACTIONS (5)
  - CHEST PAIN [None]
  - DYSPNOEA [None]
  - NASOPHARYNGITIS [None]
  - OXYGEN SUPPLEMENTATION [None]
  - PAIN IN EXTREMITY [None]
